FAERS Safety Report 5776839-7 (Version None)
Quarter: 2008Q2

REPORT INFORMATION
  Report Type: 
  Country: None (occurrence: None)
  Receive Date: 20080618
  Receipt Date: 20080611
  Transmission Date: 20081010
  Serious: Yes (Hospitalization)
  Sender: FDA-Public Use
  Company Number: TR-WATSON-2008-03561

PATIENT
  Age: 53 Year
  Sex: Male

DRUGS (2)
  1. DILTIA XT (WATSON LABORATORIES) [Suspect]
     Indication: ATRIAL FLUTTER
     Dosage: 90 MG, DAILY
     Route: 048
  2. SOTALOL HCL [Suspect]
     Indication: ATRIAL FLUTTER
     Dosage: 160 MG, DAILY
     Route: 048

REACTIONS (2)
  - CARDIOGENIC SHOCK [None]
  - DRUG INTERACTION [None]
